FAERS Safety Report 4649166-9 (Version None)
Quarter: 2005Q2

REPORT INFORMATION
  Report Type: 
  Country: None (occurrence: None)
  Receive Date: 20050427
  Receipt Date: 20050413
  Transmission Date: 20051028
  Serious: Yes (Other)
  Sender: FDA-Public Use
  Company Number: US_0503114424

PATIENT
  Age: 58 Year
  Sex: Female
  Weight: 96 kg

DRUGS (7)
  1. DULOXETINE HYDROCHLORIDE [Suspect]
     Indication: STRESS INCONTINENCE
     Dates: start: 20040202, end: 20050311
  2. UNIVASC [Concomitant]
  3. MAXZIDE [Concomitant]
  4. LIPITOR (ATORVASTTIN CALCIUM) [Concomitant]
  5. FOSAMAX [Concomitant]
  6. ATIVAN [Concomitant]
  7. ASPIRIN [Concomitant]

REACTIONS (2)
  - DRUG WITHDRAWAL SYNDROME [None]
  - SEROTONIN SYNDROME [None]
